FAERS Safety Report 8760829 (Version 1)
Quarter: 2012Q4

REPORT INFORMATION
  Report Type: 
  Country: CA (occurrence: CA)
  Receive Date: 20120829
  Receipt Date: 20120829
  Transmission Date: 20130627
  Serious: Yes (Other)
  Sender: FDA-Public Use
  Company Number: CA-BAYER-2012-086001

PATIENT
  Age: 21 Year
  Sex: Female
  Weight: 64 kg

DRUGS (6)
  1. YASMIN [Suspect]
     Dosage: 1 DF, UNK
     Route: 048
  2. CLARITIN [Concomitant]
  3. FERROUS GLUCONATE [Concomitant]
  4. IBUPROFEN [Concomitant]
  5. REACTINE [CETIRIZINE HYDROCHLORIDE] [Concomitant]
  6. TYLENOL [Concomitant]

REACTIONS (2)
  - Anger [Recovered/Resolved]
  - Mood swings [Recovered/Resolved]
